FAERS Safety Report 19952714 (Version 1)
Quarter: 2021Q4

REPORT INFORMATION
  Report Type: Spontaneous
  Country: US (occurrence: US)
  Receive Date: 20211009
  Receipt Date: 20211009
  Transmission Date: 20220303
  Serious: Yes (Hospitalization)
  Sender: FDA-Public Use
  Company Number: None

PATIENT
  Age: 60 Year
  Sex: Male
  Weight: 89.25 kg

DRUGS (1)
  1. CISPLATIN [Suspect]
     Active Substance: CISPLATIN
     Dates: end: 20210614

REACTIONS (15)
  - Nausea [None]
  - Toxicity to various agents [None]
  - Clostridium difficile colitis [None]
  - Hypophagia [None]
  - Pyrexia [None]
  - Sepsis [None]
  - Pneumonia [None]
  - Colitis [None]
  - Hypotension [None]
  - Dizziness [None]
  - Failure to thrive [None]
  - Peripheral swelling [None]
  - Deep vein thrombosis [None]
  - Condition aggravated [None]
  - Superficial vein thrombosis [None]

NARRATIVE: CASE EVENT DATE: 20210621
